FAERS Safety Report 16151103 (Version 1)
Quarter: 2019Q2

REPORT INFORMATION
  Report Type: Spontaneous
  Country: US (occurrence: US)
  Receive Date: 20190402
  Receipt Date: 20190402
  Transmission Date: 20190713
  Serious: Yes (Hospitalization)
  Sender: FDA-Public Use
  Company Number: None

PATIENT
  Age: 23 Year
  Sex: Female
  Weight: 170 kg

DRUGS (1)
  1. NEXPLANON [Suspect]
     Active Substance: ETONOGESTREL
     Dates: start: 20170823, end: 20190128

REACTIONS (4)
  - Mood swings [None]
  - Vaginal haemorrhage [None]
  - Implant site pain [None]
  - Weight increased [None]

NARRATIVE: CASE EVENT DATE: 20180828
